FAERS Safety Report 18340891 (Version 1)
Quarter: 2020Q4

REPORT INFORMATION
  Report Type: Spontaneous
  Country: US (occurrence: US)
  Receive Date: 20201003
  Receipt Date: 20201003
  Transmission Date: 20210113
  Serious: No
  Sender: FDA-Public Use
  Company Number: US-CELGENEUS-USA-20200906426

PATIENT
  Sex: Female
  Weight: 86.26 kg

DRUGS (1)
  1. REVLIMID [Suspect]
     Active Substance: LENALIDOMIDE
     Indication: PLASMA CELL MYELOMA
     Dosage: 25 MILLIGRAM
     Route: 048
     Dates: start: 20200904

REACTIONS (3)
  - Rash [Recovered/Resolved]
  - Upper-airway cough syndrome [Unknown]
  - Constipation [Unknown]

NARRATIVE: CASE EVENT DATE: 2020
